FAERS Safety Report 5963056-0 (Version None)
Quarter: 2008Q4

REPORT INFORMATION
  Report Type: 
  Country: None (occurrence: None)
  Receive Date: 20081124
  Receipt Date: 20081114
  Transmission Date: 20090506
  Serious: Yes (Death, Hospitalization, Other)
  Sender: FDA-Public Use
  Company Number: US-ROCHE-589098

PATIENT
  Sex: Female
  Weight: 59 kg

DRUGS (5)
  1. CAPECITABINE [Suspect]
     Route: 065
     Dates: end: 20080701
  2. CLONIDINE [Concomitant]
     Indication: BLOOD PRESSURE
  3. CLONIDINE [Concomitant]
     Dosage: FORM: PILLS
  4. ATENOLOL [Concomitant]
     Indication: BLOOD PRESSURE
  5. COUMADIN [Concomitant]
     Indication: DEEP VEIN THROMBOSIS

REACTIONS (8)
  - DEHYDRATION [None]
  - FAILURE TO THRIVE [None]
  - GASTROOESOPHAGEAL REFLUX DISEASE [None]
  - ILEUS [None]
  - LEUKOPENIA [None]
  - MALIGNANT NEOPLASM PROGRESSION [None]
  - ORAL CANDIDIASIS [None]
  - PATHOLOGICAL FRACTURE [None]
